FAERS Safety Report 5742520-3 (Version None)
Quarter: 2008Q2

REPORT INFORMATION
  Report Type: 
  Country: None (occurrence: None)
  Receive Date: 20080515
  Receipt Date: 20080508
  Transmission Date: 20081010
  Serious: Yes (Other)
  Sender: FDA-Public Use
  Company Number: 2008012175

PATIENT
  Sex: Male

DRUGS (1)
  1. CETIRIZINE HCL [Suspect]
     Indication: HYPERSENSITIVITY
     Dosage: 10MG, 1 TABLET ONCE, ORAL
     Route: 048
     Dates: start: 20080506, end: 20080506

REACTIONS (7)
  - DYSPNOEA [None]
  - HYPOAESTHESIA [None]
  - MALAISE [None]
  - SOMNOLENCE [None]
  - SWOLLEN TONGUE [None]
  - VOMITING [None]
  - WHITE BLOOD CELL COUNT INCREASED [None]
